FAERS Safety Report 7493282-3 (Version None)
Quarter: 2011Q2

REPORT INFORMATION
  Report Type: 
  Country: None (occurrence: None)
  Receive Date: 20110520
  Receipt Date: 20090726
  Transmission Date: 20111010
  Serious: Yes (Death, Other)
  Sender: FDA-Public Use
  Company Number: US-BAYER-200927988NA

PATIENT
  Age: 41 Year
  Sex: Male
  Weight: 99 kg

DRUGS (26)
  1. OXYCODONE HCL [Concomitant]
     Dosage: 5/325 MG
     Route: 048
  2. AMIODARONE HCL [Concomitant]
     Dosage: 400 MG
     Route: 048
     Dates: start: 20060209, end: 20060210
  3. VISIPAQUE [Concomitant]
     Dosage: 140 ML
     Route: 042
     Dates: start: 20060208, end: 20060208
  4. COLCHICINE [Concomitant]
     Route: 048
  5. LOPRESSOR [Concomitant]
     Dosage: 25 MG
     Route: 042
     Dates: start: 20060207
  6. TRASYLOL [Suspect]
     Indication: CORONARY ARTERY BYPASS
     Dosage: 1 ML TEST DOSE
     Route: 042
     Dates: start: 20060210, end: 20060210
  7. LABETALOL [Concomitant]
     Dosage: 20 MG
     Route: 042
     Dates: start: 20060208, end: 20060208
  8. DOBUTREX [Concomitant]
     Dosage: UNK
     Route: 042
     Dates: start: 20060210
  9. SODIUM BICARBONATE [Concomitant]
     Dosage: 50 MEQ, UNK
     Route: 042
     Dates: start: 20060210
  10. ASPIRIN [Concomitant]
     Dosage: 325 MG
     Route: 048
  11. INSULIN [Concomitant]
     Dosage: UNK
     Route: 041
     Dates: start: 20060210
  12. ALLOPURINOL [Concomitant]
     Route: 048
  13. POTASSIUM [Concomitant]
     Dosage: 40 MEQ
     Route: 048
     Dates: start: 20060207, end: 20060207
  14. BLOOD CELLS, PACKED HUMAN [Concomitant]
     Dosage: 1 UNIT
     Dates: start: 20060210, end: 20060210
  15. TRASYLOL [Suspect]
     Dosage: 200 ML LOADING DOSE
     Route: 042
     Dates: start: 20060210, end: 20060210
  16. HEPARIN [Concomitant]
     Dosage: UNK
     Route: 042
     Dates: start: 20060207, end: 20060209
  17. HEPARIN [Concomitant]
     Dosage: 30000 UNITS
     Route: 042
     Dates: start: 20060210, end: 20060210
  18. VANCOMYCIN [Concomitant]
     Dosage: 1 GM
     Route: 042
     Dates: start: 20060210, end: 20060210
  19. NIPRIDE [Concomitant]
     Dosage: UNK
     Route: 042
     Dates: start: 20060210
  20. BUMETANIDE [Concomitant]
     Route: 048
  21. IBUPROFEN [Concomitant]
     Dosage: 400 MG
     Route: 048
  22. NITROGLYCERIN [Concomitant]
     Dosage: 0.4 MG
     Route: 060
     Dates: start: 20060208, end: 20060208
  23. VERSED [Concomitant]
     Dosage: UNK
     Route: 042
     Dates: start: 20060210
  24. FENTANYL [Concomitant]
     Dosage: UNK
     Route: 042
     Dates: start: 20060210
  25. INDOMETHACIN [Concomitant]
     Route: 048
  26. PROTAMINE SULFATE [Concomitant]
     Dosage: 250 MG
     Route: 042
     Dates: start: 20060210

REACTIONS (9)
  - RENAL FAILURE [None]
  - PAIN [None]
  - DEPRESSION [None]
  - ANHEDONIA [None]
  - INJURY [None]
  - FEAR [None]
  - DEATH [None]
  - ANXIETY [None]
  - UNEVALUABLE EVENT [None]
